FAERS Safety Report 10206318 (Version 1)
Quarter: 2014Q2

REPORT INFORMATION
  Report Type: Spontaneous
  Country: SE (occurrence: SE)
  Receive Date: 20140530
  Receipt Date: 20140530
  Transmission Date: 20141212
  Serious: Yes (Disabling)
  Sender: FDA-Public Use
  Company Number: PHHY2014SE062889

PATIENT
  Age: 47 Year
  Sex: Male

DRUGS (3)
  1. GLIVEC [Suspect]
     Indication: GASTROINTESTINAL STROMAL TUMOUR
     Route: 048
     Dates: start: 20090513, end: 20100512
  2. PANTOLOC ^BYK GULDEN^ [Concomitant]
     Dosage: UNK UKN, UNK
  3. CELEBRA [Concomitant]
     Dosage: UNK UKN, UNK

REACTIONS (1)
  - Coeliac disease [Not Recovered/Not Resolved]
